FAERS Safety Report 8012472-4 (Version None)
Quarter: 2011Q4

REPORT INFORMATION
  Report Type: 
  Country: None (occurrence: None)
  Receive Date: 20111228
  Receipt Date: 20111214
  Transmission Date: 20120403
  Serious: Yes (Congenital Anomaly)
  Sender: FDA-Public Use
  Company Number: US-AMGEN-USASP2011068455

PATIENT

DRUGS (1)
  1. ENBREL [Suspect]
     Indication: PRODUCT USED FOR UNKNOWN INDICATION
     Dosage: UNK
     Route: 064

REACTIONS (9)
  - TRACHEO-OESOPHAGEAL FISTULA [None]
  - OESOPHAGEAL ATRESIA [None]
  - HYPOSPADIAS [None]
  - FOETAL EXPOSURE DURING PREGNANCY [None]
  - ANAL ATRESIA [None]
  - VACTERL SYNDROME [None]
  - TRACHEAL ATRESIA [None]
  - SPINE MALFORMATION [None]
  - ATRIAL SEPTAL DEFECT [None]
